FAERS Safety Report 4974735-6 (Version None)
Quarter: 2006Q2

REPORT INFORMATION
  Report Type: 
  Country: None (occurrence: None)
  Receive Date: 20060417
  Receipt Date: 20051215
  Transmission Date: 20061013
  Serious: Yes (Hospitalization)
  Sender: FDA-Public Use
  Company Number: US-MERCK-0512USA02570

PATIENT
  Age: 46 Year
  Sex: Male
  Weight: 100 kg

DRUGS (16)
  1. VIOXX [Suspect]
     Indication: MENISCUS LESION
     Route: 048
     Dates: start: 20040917, end: 20040930
  2. VIOXX [Suspect]
     Route: 048
     Dates: start: 20011023, end: 20040901
  3. VIOXX [Suspect]
     Indication: MONARTHRITIS
     Route: 048
     Dates: start: 20040917, end: 20040930
  4. VIOXX [Suspect]
     Route: 048
     Dates: start: 20011023, end: 20040901
  5. ALLEGRA [Concomitant]
     Indication: URTICARIA
     Route: 065
  6. ATARAX [Concomitant]
     Indication: URTICARIA
     Route: 065
  7. CLARINEX [Concomitant]
     Indication: HYPERSENSITIVITY
     Route: 065
  8. CYPROHEPTADINE HYDROCHLORIDE [Concomitant]
     Indication: URTICARIA
     Route: 065
  9. DOXEPIN HYDROCHLORIDE [Concomitant]
     Indication: URTICARIA
     Route: 065
  10. SINGULAIR [Concomitant]
     Indication: URTICARIA
     Route: 048
  11. TYLENOL (CAPLET) [Concomitant]
     Indication: PAIN
     Route: 065
     Dates: start: 19850101
  12. TYLENOL (CAPLET) [Concomitant]
     Indication: MENISCUS LESION
     Route: 065
     Dates: start: 19850101
  13. TOPROL-XL [Concomitant]
     Route: 048
  14. PLAVIX [Concomitant]
     Route: 048
  15. PRAVACHOL [Concomitant]
     Route: 048
  16. ASPIRIN [Concomitant]
     Route: 065

REACTIONS (12)
  - BLOOD CHOLESTEROL INCREASED [None]
  - BRONCHITIS [None]
  - CARTILAGE INJURY [None]
  - CORONARY ARTERY DISEASE [None]
  - CORONARY ARTERY OCCLUSION [None]
  - CORONARY ARTERY THROMBOSIS [None]
  - HYPERCHOLESTEROLAEMIA [None]
  - HYPERTENSION [None]
  - HYPERTRIGLYCERIDAEMIA [None]
  - MYOCARDIAL INFARCTION [None]
  - MYOCARDIAL ISCHAEMIA [None]
  - OSTEOARTHRITIS [None]
